FAERS Safety Report 4479088-8 (Version None)
Quarter: 2004Q4

REPORT INFORMATION
  Report Type: 
  Country: None (occurrence: None)
  Receive Date: 20040923
  Receipt Date: 20040825
  Transmission Date: 20050328
  Serious: No
  Sender: FDA-Public Use
  Company Number: 208644

PATIENT
  Age: 52 Year
  Sex: Male

DRUGS (5)
  1. AVASTIN [Suspect]
     Indication: RENAL CELL CARCINOMA STAGE UNSPECIFIED
     Dosage: 10 MG/KG, Q2W, INTRAVENOUS
     Route: 042
  2. NEURONTIN [Suspect]
     Indication: NEUROPATHIC PAIN
     Dosage: ORAL
     Route: 048
  3. LITHIUM (LITHIUM NOS) [Concomitant]
  4. OXYCODONE (OXYCODONE) [Concomitant]
  5. VIOXX [Concomitant]

REACTIONS (2)
  - DIPLOPIA [None]
  - MYOCLONUS [None]
